FAERS Safety Report 19299532 (Version 1)
Quarter: 2021Q2

REPORT INFORMATION
  Report Type: Spontaneous
  Country: US (occurrence: US)
  Receive Date: 20210524
  Receipt Date: 20210524
  Transmission Date: 20210717
  Serious: Yes (Death)
  Sender: FDA-Public Use
  Company Number: None

PATIENT
  Age: 74 Year
  Sex: Female
  Weight: 84.82 kg

DRUGS (17)
  1. ALBUTEROL SULFATE. [Concomitant]
     Active Substance: ALBUTEROL SULFATE
  2. TRESIBA [Concomitant]
     Active Substance: INSULIN DEGLUDEC
  3. PROAIR HFA [Concomitant]
     Active Substance: ALBUTEROL SULFATE
  4. ALLOPURINOL. [Concomitant]
     Active Substance: ALLOPURINOL
  5. ECOTRIN [Concomitant]
     Active Substance: ASPIRIN
  6. FLONASE [Concomitant]
     Active Substance: FLUTICASONE PROPIONATE
  7. LACTULOSE. [Concomitant]
     Active Substance: LACTULOSE
  8. ELIQUIS [Concomitant]
     Active Substance: APIXABAN
  9. SINGULAIR [Concomitant]
     Active Substance: MONTELUKAST SODIUM
  10. SODIUM BICARBONATE. [Concomitant]
     Active Substance: SODIUM BICARBONATE
  11. PROLIA [Suspect]
     Active Substance: DENOSUMAB
     Indication: OSTEOPOROSIS
     Dosage: ?          OTHER FREQUENCY:EVERY 6 MONTHS;?
     Route: 058
     Dates: start: 20201130, end: 20210524
  12. COLCHICINE. [Concomitant]
     Active Substance: COLCHICINE
  13. FUROSEMIDE. [Concomitant]
     Active Substance: FUROSEMIDE
  14. GOLYTELY [Concomitant]
     Active Substance: POLYETHYLENE GLYCOL 3350\POTASSIUM CHLORIDE\SODIUM BICARBONATE\SODIUM CHLORIDE\SODIUM SULFATE
  15. NIFEDIPINE. [Concomitant]
     Active Substance: NIFEDIPINE
  16. FEMARA [Concomitant]
     Active Substance: LETROZOLE
  17. NOVOLOG [Concomitant]
     Active Substance: INSULIN ASPART

REACTIONS (1)
  - Death [None]

NARRATIVE: CASE EVENT DATE: 20210524
